FAERS Safety Report 9620817 (Version 2)
Quarter: 2013Q4

REPORT INFORMATION
  Report Type: Spontaneous
  Country: US (occurrence: US)
  Receive Date: 20131015
  Receipt Date: 20131022
  Transmission Date: 20140711
  Serious: Yes (Death)
  Sender: FDA-Public Use
  Company Number: US-ROCHE-1288402

PATIENT
  Age: 83 Year
  Sex: Female

DRUGS (3)
  1. ALTEPLASE [Suspect]
     Indication: CEREBROVASCULAR ACCIDENT
     Dosage: ^PROPER DOSE^ UNSPECIFIED
     Route: 065
     Dates: start: 20131010
  2. BENICAR HCT [Concomitant]
  3. CRESTOR [Concomitant]

REACTIONS (6)
  - Headache [Fatal]
  - Nausea [Fatal]
  - Vomiting [Fatal]
  - Haemorrhage [Fatal]
  - Convulsion [Fatal]
  - Coma [Fatal]
